FAERS Safety Report 6163894-8 (Version None)
Quarter: 2009Q2

REPORT INFORMATION
  Report Type: 
  Country: None (occurrence: None)
  Receive Date: 20090422
  Receipt Date: 20090416
  Transmission Date: 20091009
  Serious: Yes (Life-Threatening, Hospitalization, Disabling)
  Sender: FDA-Public Use
  Company Number: US-MERCK-0903USA00108

PATIENT
  Age: 45 Year
  Sex: Female
  Weight: 123 kg

DRUGS (35)
  1. SINGULAIR [Suspect]
     Indication: ASTHMA
     Route: 048
     Dates: start: 20080124
  2. METFORMIN [Concomitant]
     Route: 048
  3. FLAVOXATE HYDROCHLORIDE [Concomitant]
     Route: 048
  4. PRIMIDONE [Concomitant]
     Route: 048
  5. ASPIRIN [Concomitant]
     Route: 048
  6. SIMVASTATIN [Concomitant]
     Route: 048
  7. PEPCID [Concomitant]
     Route: 048
  8. CYMBALTA [Concomitant]
     Route: 048
  9. LAMICTAL [Concomitant]
     Route: 048
  10. ABILIFY [Concomitant]
     Route: 048
  11. TRAZODONE HYDROCHLORIDE [Concomitant]
     Route: 048
  12. LYRICA [Concomitant]
     Route: 048
  13. ADVAIR HFA [Concomitant]
  14. VITAMINS (UNSPECIFIED) [Concomitant]
     Route: 048
  15. OXYBUTYNIN [Concomitant]
     Route: 048
  16. PROVERA [Concomitant]
     Route: 048
  17. NYSTATIN [Concomitant]
     Route: 061
  18. NYSTATIN [Concomitant]
     Route: 061
  19. PROCTOSOL-HC CREAM [Concomitant]
     Route: 065
  20. ASTELIN [Concomitant]
  21. NASACORT AQ [Concomitant]
  22. MAGNESIUM (UNSPECIFIED) [Concomitant]
     Route: 048
  23. COLACE [Concomitant]
     Route: 048
  24. LASIX [Concomitant]
     Route: 048
  25. BENADRYL [Concomitant]
     Route: 048
  26. ALBUTEROL SULFATE [Concomitant]
  27. IMODIUM [Concomitant]
     Route: 048
  28. ALBUTEROL SULFATE [Concomitant]
  29. DELSYM [Concomitant]
     Route: 065
  30. TUMS [Concomitant]
     Route: 048
  31. DEXTROSE [Concomitant]
     Route: 065
  32. IMITREX [Concomitant]
     Route: 048
  33. FLUOXETINE [Concomitant]
     Route: 065
  34. MAXALT [Concomitant]
     Route: 048
  35. PROTONIX [Concomitant]
     Route: 065

REACTIONS (3)
  - DEPRESSION [None]
  - MOOD ALTERED [None]
  - SUICIDAL IDEATION [None]
